FAERS Safety Report 14417723 (Version 1)
Quarter: 2018Q1

REPORT INFORMATION
  Report Type: Spontaneous
  Country: US (occurrence: US)
  Receive Date: 20180119
  Receipt Date: 20180119
  Transmission Date: 20180509
  Serious: Yes (Congenital Anomaly)
  Sender: FDA-Public Use
  Company Number: None

PATIENT
  Age: 0 Day
  Sex: Female
  Weight: 11.1 kg

DRUGS (2)
  1. ONDANSETRON [Suspect]
     Active Substance: ONDANSETRON
     Indication: HYPEREMESIS GRAVIDARUM
     Route: 048
     Dates: start: 20140301, end: 20141001
  2. PRENATAL VITAMIN [Concomitant]
     Active Substance: VITAMINS

REACTIONS (2)
  - Maternal drugs affecting foetus [None]
  - Atrial septal defect [None]

NARRATIVE: CASE EVENT DATE: 20141123
